FAERS Safety Report 5697766-X (Version None)
Quarter: 2008Q2

REPORT INFORMATION
  Report Type: 
  Country: None (occurrence: None)
  Receive Date: 20080404
  Receipt Date: 20080404
  Transmission Date: 20081010
  Serious: Yes (Hospitalization)
  Sender: FDA-Public Use
  Company Number: None

PATIENT
  Age: 19 Year
  Sex: Male
  Weight: 56.6996 kg

DRUGS (3)
  1. AMANTADINE HCL [Suspect]
     Indication: ANOXIA
     Dosage: 100 MG TWICE PER DAY PO
     Route: 048
     Dates: start: 20070201, end: 20070318
  2. AMANTADINE HCL [Suspect]
     Indication: BRAIN INJURY
     Dosage: 100 MG TWICE PER DAY PO
     Route: 048
     Dates: start: 20070201, end: 20070318
  3. PROZAC [Suspect]
     Indication: DEPRESSION
     Dosage: 20 MG TWICE PER DAY PO
     Route: 048
     Dates: start: 20061213, end: 20070318

REACTIONS (5)
  - FEAR [None]
  - HALLUCINATIONS, MIXED [None]
  - HYPERACUSIS [None]
  - INSOMNIA [None]
  - MEDICATION TAMPERING [None]
